FAERS Safety Report 6498876-X (Version None)
Quarter: 2009Q4

REPORT INFORMATION
  Report Type: 
  Country: None (occurrence: None)
  Receive Date: 20091215
  Receipt Date: 20091204
  Transmission Date: 20100525
  Serious: Yes (Hospitalization)
  Sender: FDA-Public Use
  Company Number: DE-JNJFOC-20091103920

PATIENT
  Sex: Male
  Weight: 75 kg

DRUGS (3)
  1. STELARA [Suspect]
     Route: 058
     Dates: start: 20090709, end: 20090806
  2. STELARA [Suspect]
     Indication: PSORIASIS
     Route: 058
     Dates: start: 20090709, end: 20090806
  3. VOTUM [Concomitant]
     Route: 048

REACTIONS (1)
  - BRONCHITIS [None]
